FAERS Safety Report 17740918 (Version 1)
Quarter: 2020Q2

REPORT INFORMATION
  Report Type: Spontaneous
  Country: BE (occurrence: BE)
  Receive Date: 20200504
  Receipt Date: 20200504
  Transmission Date: 20200714
  Serious: Yes (Disabling)
  Sender: FDA-Public Use
  Company Number: BE-TEVA-2020-BE-1228233

PATIENT
  Age: 55 Year
  Sex: Female

DRUGS (4)
  1. L-THYROXINE CHRISTIAENS 175 MG [Concomitant]
  2. TRAZODONE EG 100 MG TABL. [Suspect]
     Active Substance: TRAZODONE HYDROCHLORIDE
     Indication: DEPRESSION
     Dosage: 5.5 TABLETS / DAY (MORNING, EVENING, AND NIGHT)
     Route: 065
     Dates: start: 202001
  3. SINTROM [Concomitant]
     Active Substance: ACENOCOUMAROL
  4. TRAZODONE TEVA 100 MG TABL. [Suspect]
     Active Substance: TRAZODONE HYDROCHLORIDE
     Indication: DEPRESSION
     Dosage: 5.5 DOSAGE FORMS
     Route: 048
     Dates: start: 202003

REACTIONS (8)
  - Self-injurious ideation [Not Recovered/Not Resolved]
  - Hypertension [Not Recovered/Not Resolved]
  - Intentional product misuse [Not Recovered/Not Resolved]
  - Adjustment disorder with depressed mood [Not Recovered/Not Resolved]
  - Sedation [Not Recovered/Not Resolved]
  - Drug dependence [Not Recovered/Not Resolved]
  - Asthenia [Not Recovered/Not Resolved]
  - Therapeutic response changed [Not Recovered/Not Resolved]
